FAERS Safety Report 8314875 (Version 2)
Quarter: 2012Q4

REPORT INFORMATION
  Report Type: 
  Country: FR (occurrence: FR)
  Receive Date: 20111229
  Receipt Date: 20121102
  Transmission Date: 20130627
  Serious: Yes (Other)
  Sender: FDA-Public Use
  Company Number: FR-UCBSA-047982

PATIENT
  Age: 56 Year
  Sex: Female

DRUGS (2)
  1. CIMZIA [Suspect]
     Indication: RHEUMATOID ARTHRITIS
     Route: 058
     Dates: start: 20110601, end: 2011
  2. CORTISONE [Suspect]
     Dosage: IRREGULAR INTAKES

REACTIONS (1)
  - Pyelonephritis [Recovered/Resolved]
